FAERS Safety Report 14260721 (Version 4)
Quarter: 2018Q1

REPORT INFORMATION
  Report Type: Spontaneous
  Country: JP (occurrence: JP)
  Receive Date: 20171207
  Receipt Date: 20180117
  Transmission Date: 20180508
  Serious: Yes (Other)
  Sender: FDA-Public Use
  Company Number: JP-009507513-1712JPN001688

PATIENT
  Age: 85 Year
  Sex: Male

DRUGS (6)
  1. BETAMETHASONE (+) DEXCHLORPHENIRAMINE MALEATE [Suspect]
     Active Substance: BETAMETHASONE\DEXCHLORPHENIRAMINE MALEATE
     Dosage: UNK
     Route: 048
  2. BETAMETHASONE. [Suspect]
     Active Substance: BETAMETHASONE
     Indication: RASH
     Dosage: UNK
     Route: 048
  3. PREDNISOLONE. [Suspect]
     Active Substance: PREDNISOLONE
     Dosage: 2.5 MG DAILY DOSE
     Route: 065
  4. BETAMETHASONE. [Suspect]
     Active Substance: BETAMETHASONE
     Indication: RASH
     Dosage: 2 TABLETS OF 0.5 MG (REDUCED TO 1 TABLET AFTER A MONTH)
     Route: 048
  5. PREDNISOLONE. [Suspect]
     Active Substance: PREDNISOLONE
     Dosage: 5 MG DAILY DOSE
     Route: 065
  6. PREDNISOLONE. [Suspect]
     Active Substance: PREDNISOLONE
     Indication: RHEUMATOID ARTHRITIS
     Dosage: UNK
     Route: 065

REACTIONS (1)
  - Hepatitis B reactivation [Unknown]
